FAERS Safety Report 23441158 (Version 2)
Quarter: 2024Q1

REPORT INFORMATION
  Report Type: Spontaneous
  Country: JP (occurrence: JP)
  Receive Date: 20240125
  Receipt Date: 20240208
  Transmission Date: 20240410
  Serious: Yes (Death, Hospitalization, Other)
  Sender: FDA-Public Use
  Company Number: JP-UNITED THERAPEUTICS-UNT-2024-002343

PATIENT
  Age: 70 Year
  Sex: Male
  Weight: 52.49 kg

DRUGS (10)
  1. TYVASO [Suspect]
     Active Substance: TREPROSTINIL
     Indication: Pulmonary hypertension
     Dosage: 18 ?G, QID
     Dates: start: 20230523, end: 2023
  2. TYVASO [Suspect]
     Active Substance: TREPROSTINIL
     Indication: Chronic obstructive pulmonary disease
     Dosage: UNK
     Dates: start: 20230530, end: 2023
  3. TYVASO [Suspect]
     Active Substance: TREPROSTINIL
     Dosage: 54 ?G, QID
     Dates: start: 20230614, end: 20230816
  4. TYVASO [Suspect]
     Active Substance: TREPROSTINIL
     Dosage: 24 ?G, QID
     Dates: start: 20230817
  5. REVATIO [Concomitant]
     Active Substance: SILDENAFIL CITRATE
     Indication: Pulmonary hypertension
     Dosage: 60 MG, QD
     Route: 065
     Dates: start: 20220113
  6. REVATIO [Concomitant]
     Active Substance: SILDENAFIL CITRATE
     Indication: Chronic obstructive pulmonary disease
  7. UPTRAVI [Concomitant]
     Active Substance: SELEXIPAG
     Indication: Pulmonary hypertension
     Dosage: 1 MG, QD
     Route: 065
     Dates: start: 2023
  8. UPTRAVI [Concomitant]
     Active Substance: SELEXIPAG
     Indication: Chronic obstructive pulmonary disease
  9. GLYCOPYRRONIUM\INDACATEROL [Concomitant]
     Active Substance: GLYCOPYRRONIUM\INDACATEROL
     Indication: Pulmonary hypertension
     Dosage: UNK, QD
     Dates: start: 20220122
  10. GLYCOPYRRONIUM\INDACATEROL [Concomitant]
     Active Substance: GLYCOPYRRONIUM\INDACATEROL
     Indication: Chronic obstructive pulmonary disease

REACTIONS (8)
  - Pneumonia bacterial [Fatal]
  - Respiratory failure [Recovering/Resolving]
  - Inguinal hernia [Unknown]
  - Headache [Unknown]
  - Pain in jaw [Unknown]
  - COVID-19 [Unknown]
  - Chronic obstructive pulmonary disease [Unknown]
  - Off label use [Unknown]

NARRATIVE: CASE EVENT DATE: 20230101
